FAERS Safety Report 9693029 (Version 1)
Quarter: 2013Q4

REPORT INFORMATION
  Report Type: Spontaneous
  Country: US (occurrence: US)
  Receive Date: 20131118
  Receipt Date: 20131118
  Transmission Date: 20140711
  Serious: Yes (Other)
  Sender: FDA-Public Use
  Company Number: US-SA-2013SA118168

PATIENT
  Age: 63 Year
  Sex: Female

DRUGS (3)
  1. LANTUS SOLOSTAR [Suspect]
     Indication: TYPE 2 DIABETES MELLITUS
     Dosage: DOSE:10 UNIT(S)
     Route: 058
  2. PREDNISONE [Suspect]
     Route: 065
  3. SOLOSTAR [Concomitant]

REACTIONS (4)
  - Malaise [Recovering/Resolving]
  - Weight increased [Unknown]
  - Blood glucose increased [Unknown]
  - Medication error [Unknown]
